FAERS Safety Report 16805067 (Version 1)
Quarter: 2019Q3

REPORT INFORMATION
  Report Type: Spontaneous
  Country: US (occurrence: US)
  Receive Date: 20190723
  Receipt Date: 20190723
  Transmission Date: 20191005
  Serious: Yes (Hospitalization)
  Sender: FDA-Public Use
  Company Number: None

PATIENT
  Age: 62 Year
  Sex: Female
  Weight: 62.8 kg

DRUGS (3)
  1. OLANZAPINE. [Suspect]
     Active Substance: OLANZAPINE
     Dates: end: 20190701
  2. ALOXI [Suspect]
     Active Substance: PALONOSETRON HYDROCHLORIDE
     Dates: end: 20190628
  3. DEXAMETHASONE. [Suspect]
     Active Substance: DEXAMETHASONE
     Dates: end: 20190701

REACTIONS (11)
  - Anal incontinence [None]
  - Blood magnesium decreased [None]
  - Hypotension [None]
  - Pyrexia [None]
  - Tachycardia [None]
  - Calcium ionised decreased [None]
  - Abdominal pain [None]
  - Neutropenia [None]
  - Sepsis [None]
  - Blood potassium decreased [None]
  - Confusional state [None]

NARRATIVE: CASE EVENT DATE: 20190706
